FAERS Safety Report 7478256-0 (Version None)
Quarter: 2011Q2

REPORT INFORMATION
  Report Type: 
  Country: None (occurrence: None)
  Receive Date: 20110513
  Receipt Date: 20110510
  Transmission Date: 20111010
  Serious: Yes (Death, Other)
  Sender: FDA-Public Use
  Company Number: PHHY2011CA22710

PATIENT
  Age: 2 Year
  Sex: Female

DRUGS (11)
  1. CYCLOSPORINE [Suspect]
     Indication: HEART TRANSPLANT
     Dosage: UNK
  2. FUROSEMIDE [Concomitant]
  3. ACETYL SALICYLIC ACID USP BAT [Concomitant]
  4. PENICILLIN [Concomitant]
  5. MYCOPHENOLATE MOFETIL [Suspect]
     Indication: HEART TRANSPLANT
  6. PREDNISOLONE [Suspect]
     Indication: HEART TRANSPLANT
  7. NYSTATIN [Concomitant]
  8. NOVOSPIROZINE [Concomitant]
  9. ASPIRIN [Concomitant]
  10. COTRIM [Concomitant]
  11. RANITIDINE [Concomitant]

REACTIONS (10)
  - EOSINOPHILIC MYOCARDITIS [None]
  - EOSINOPHILIA [None]
  - DECREASED APPETITE [None]
  - CIRCULATORY COLLAPSE [None]
  - CARDIAC INFECTION [None]
  - LYMPHOCYTIC INFILTRATION [None]
  - INFLAMMATION [None]
  - ASTHENIA [None]
  - MYOCARDIAL INFARCTION [None]
  - HEART TRANSPLANT REJECTION [None]
